FAERS Safety Report 4532297-1 (Version None)
Quarter: 2004Q4

REPORT INFORMATION
  Report Type: 
  Country: None (occurrence: None)
  Receive Date: 20041206
  Receipt Date: 20041013
  Transmission Date: 20050328
  Serious: No
  Sender: FDA-Public Use
  Company Number: US_0410107077

PATIENT
  Sex: Male

DRUGS (1)
  1. CYMBALTA [Suspect]
     Dosage: 60 MG
     Dates: start: 20040904

REACTIONS (5)
  - DYSGEUSIA [None]
  - DYSKINESIA [None]
  - HYPERHIDROSIS [None]
  - TREMOR [None]
  - WEIGHT DECREASED [None]
